FAERS Safety Report 5262135-3 (Version None)
Quarter: 2007Q1

REPORT INFORMATION
  Report Type: 
  Country: None (occurrence: None)
  Receive Date: 20070311
  Receipt Date: 20070228
  Transmission Date: 20070707
  Serious: Yes (Hospitalization, Other)
  Sender: FDA-Public Use
  Company Number: 2006UW09865

PATIENT
  Sex: Male
  Weight: 81.8 kg

DRUGS (28)
  1. SEROQUEL [Suspect]
     Indication: SLEEP DISORDER
     Dosage: INDICATION SLEEP
     Route: 048
     Dates: start: 20030301
  2. SEROQUEL [Suspect]
     Indication: SCHIZOPHRENIA
     Dosage: INDICATION SLEEP
     Route: 048
     Dates: start: 20030301
  3. SEROQUEL [Suspect]
     Dosage: INDICATION SLEEP
     Route: 048
     Dates: start: 20030604
  4. SEROQUEL [Suspect]
     Dosage: INDICATION SLEEP
     Route: 048
     Dates: start: 20030604
  5. SEROQUEL [Suspect]
     Dosage: INDICATION SLEEP
     Route: 048
     Dates: start: 20030917
  6. SEROQUEL [Suspect]
     Dosage: INDICATION SLEEP
     Route: 048
     Dates: start: 20030917
  7. SEROQUEL [Suspect]
     Dosage: INDICATION SLEEP
     Route: 048
     Dates: start: 20040326
  8. SEROQUEL [Suspect]
     Dosage: INDICATION SLEEP
     Route: 048
     Dates: start: 20040326
  9. SEROQUEL [Suspect]
     Dosage: INDICATION SLEEP
     Route: 048
     Dates: start: 20040816
  10. SEROQUEL [Suspect]
     Dosage: INDICATION SLEEP
     Route: 048
     Dates: start: 20040816
  11. SEROQUEL [Suspect]
     Dosage: INDICATION SCHIZOPHRENIA
     Route: 048
     Dates: start: 20030327
  12. SEROQUEL [Suspect]
     Dosage: INDICATION SCHIZOPHRENIA
     Route: 048
     Dates: start: 20030327
  13. SEROQUEL [Suspect]
     Dosage: INDICATION SCHIZOPHRENIA, DOSAGE VARIED BETWEEN 200-350 MG
     Route: 048
     Dates: start: 20030326, end: 20030811
  14. SEROQUEL [Suspect]
     Dosage: INDICATION SCHIZOPHRENIA, DOSAGE VARIED BETWEEN 200-350 MG
     Route: 048
     Dates: start: 20030326, end: 20030811
  15. SEROQUEL [Suspect]
     Dosage: INDICATION SCHIZOPHRENIA
     Route: 048
     Dates: start: 20031215, end: 20041204
  16. SEROQUEL [Suspect]
     Dosage: INDICATION SCHIZOPHRENIA
     Route: 048
     Dates: start: 20031215, end: 20041204
  17. SEROQUEL [Suspect]
     Dosage: INDICATION SCHIZOPHRENIA
     Route: 048
     Dates: start: 20041205, end: 20050218
  18. SEROQUEL [Suspect]
     Dosage: INDICATION SCHIZOPHRENIA
     Route: 048
     Dates: start: 20041205, end: 20050218
  19. SEROQUEL [Suspect]
     Dosage: INDICATION SCHIZOPHRENIA
     Route: 048
     Dates: start: 20050224, end: 20050428
  20. SEROQUEL [Suspect]
     Dosage: INDICATION SCHIZOPHRENIA
     Route: 048
     Dates: start: 20050224, end: 20050428
  21. SEROQUEL [Suspect]
     Dosage: INDICATION SCHIZOPHRENIA
     Route: 048
     Dates: start: 20050601, end: 20060626
  22. SEROQUEL [Suspect]
     Dosage: INDICATION SCHIZOPHRENIA
     Route: 048
     Dates: start: 20050601, end: 20060626
  23. SEROQUEL [Suspect]
     Dosage: INDICATION SCHIZOPHRENIA
     Route: 048
     Dates: start: 20050630, end: 20051203
  24. SEROQUEL [Suspect]
     Dosage: INDICATION SCHIZOPHRENIA
     Route: 048
     Dates: start: 20050630, end: 20051203
  25. SEROQUEL [Suspect]
     Route: 048
     Dates: start: 20060101
  26. SEROQUEL [Suspect]
     Route: 048
     Dates: start: 20060101
  27. RISPERDAL [Concomitant]
     Dates: start: 20030604
  28. THORAZINE [Concomitant]

REACTIONS (15)
  - BLOOD CHOLESTEROL INCREASED [None]
  - BLOOD TRIGLYCERIDES INCREASED [None]
  - BRONCHITIS [None]
  - CARDIAC FAILURE CONGESTIVE [None]
  - CHEST PAIN [None]
  - DEPRESSION SUICIDAL [None]
  - DIABETES MELLITUS [None]
  - MENINGITIS [None]
  - MENTAL STATUS CHANGES [None]
  - NAUSEA [None]
  - OBESITY [None]
  - PANCREATITIS [None]
  - PNEUMONIA [None]
  - RESPIRATORY FAILURE [None]
  - VOMITING [None]
